FAERS Safety Report 10169889 (Version 1)
Quarter: 2014Q2

REPORT INFORMATION
  Report Type: Spontaneous
  Country: US (occurrence: US)
  Receive Date: 20140513
  Receipt Date: 20140513
  Transmission Date: 20141212
  Serious: Yes (Death, Hospitalization, Other)
  Sender: FDA-Public Use
  Company Number: US-B.I. PHARMACEUTICALS,INC./RIDGEFIELD-2014-BI-20890GD

PATIENT
  Age: 15 Year
  Sex: Female

DRUGS (3)
  1. NEVIRAPINE [Suspect]
     Indication: ACQUIRED IMMUNODEFICIENCY SYNDROME
     Route: 065
  2. TENOFOVIR/EMTRICITABINE [Suspect]
     Indication: ACQUIRED IMMUNODEFICIENCY SYNDROME
     Route: 065
  3. RALTEGRAVIR [Suspect]
     Indication: ACQUIRED IMMUNODEFICIENCY SYNDROME
     Route: 065

REACTIONS (10)
  - Immune reconstitution inflammatory syndrome [Fatal]
  - Central nervous system lesion [Unknown]
  - Depressed level of consciousness [Unknown]
  - Neurological decompensation [Unknown]
  - Generalised tonic-clonic seizure [Unknown]
  - Dysarthria [Unknown]
  - Dysphagia [Unknown]
  - Urinary incontinence [Unknown]
  - Hemiplegia [Unknown]
  - Abasia [Unknown]
